FAERS Safety Report 8099777-6 (Version None)
Quarter: 2012Q1

REPORT INFORMATION
  Report Type: 
  Country: None (occurrence: None)
  Receive Date: 20120129
  Receipt Date: 20110921
  Transmission Date: 20120608
  Serious: No
  Sender: FDA-Public Use
  Company Number: US-ABBOTT-11P-163-0855619-00

PATIENT
  Age: 44 Year
  Sex: Female

DRUGS (1)
  1. HUMIRA [Suspect]
     Indication: RHEUMATOID ARTHRITIS
     Dates: end: 20110801

REACTIONS (6)
  - PAIN IN EXTREMITY [None]
  - CRYING [None]
  - PAIN [None]
  - PAIN OF SKIN [None]
  - RHEUMATOID ARTHRITIS [None]
  - EMOTIONAL DISTRESS [None]
